FAERS Safety Report 4403615-X (Version None)
Quarter: 2004Q3

REPORT INFORMATION
  Report Type: 
  Country: None (occurrence: None)
  Receive Date: 20040719
  Receipt Date: 20040628
  Transmission Date: 20050211
  Serious: Yes (Hospitalization)
  Sender: FDA-Public Use
  Company Number: O4P-163-0266871-00

PATIENT
  Age: 53 Year
  Sex: Female

DRUGS (1)
  1. HUMIRA [Suspect]
     Indication: RHEUMATOID ARTHRITIS
     Dosage: 40 MG, 1 IN 2 WK, SUBCUTANEOUS
     Route: 058
     Dates: start: 20031023, end: 20040528

REACTIONS (4)
  - GASTROINTESTINAL DISORDER [None]
  - GRANULOMA [None]
  - PLEURAL EFFUSION [None]
  - TUBERCULOSIS [None]
